FAERS Safety Report 13763187 (Version 3)
Quarter: 2017Q4

REPORT INFORMATION
  Report Type: Spontaneous
  Country: US (occurrence: US)
  Receive Date: 20170718
  Receipt Date: 20171127
  Transmission Date: 20180320
  Serious: Yes (Other)
  Sender: FDA-Public Use
  Company Number: US-TEVA-787681USA

PATIENT
  Sex: Male

DRUGS (7)
  1. CITALOPRAM [Suspect]
     Active Substance: CITALOPRAM HYDROBROMIDE
     Route: 065
  2. CARBIDOPA W/LEVODOPA [Concomitant]
     Active Substance: CARBIDOPA\LEVODOPA
     Dosage: 25/100
  3. CARBIDOPA W/LEVODOPA [Concomitant]
     Active Substance: CARBIDOPA\LEVODOPA
     Dosage: 50/200
  4. LOW DOSE VENLAFAXINE [Concomitant]
  5. AZILECT [Suspect]
     Active Substance: RASAGILINE MESYLATE
     Indication: PARKINSON^S DISEASE
     Dosage: 1 MILLIGRAM DAILY;
     Route: 065
     Dates: start: 20170719, end: 20170730
  6. ENTACAPONE. [Concomitant]
     Active Substance: ENTACAPONE
  7. CLONOPIN [Concomitant]
     Active Substance: CLONAZEPAM

REACTIONS (9)
  - Hypoaesthesia [Not Recovered/Not Resolved]
  - Cataract [Not Recovered/Not Resolved]
  - Hyperhidrosis [Unknown]
  - Musculoskeletal stiffness [Not Recovered/Not Resolved]
  - Serotonin syndrome [Unknown]
  - Muscular weakness [Not Recovered/Not Resolved]
  - Neuropathy peripheral [Not Recovered/Not Resolved]
  - Fatigue [Not Recovered/Not Resolved]
  - Tremor [Not Recovered/Not Resolved]
